FAERS Safety Report 12654707 (Version 1)
Quarter: 2016Q3

REPORT INFORMATION
  Report Type: Spontaneous
  Country: US (occurrence: US)
  Receive Date: 20160816
  Receipt Date: 20160816
  Transmission Date: 20161109
  Serious: No
  Sender: FDA-Public Use
  Company Number: US-BAYER-2016-157934

PATIENT
  Sex: Male
  Weight: 97.51 kg

DRUGS (6)
  1. SYNTHROID [Concomitant]
     Active Substance: LEVOTHYROXINE SODIUM
     Dosage: UNK
  2. MEMANTINE. [Concomitant]
     Active Substance: MEMANTINE
     Dosage: UNK
  3. MIRALAX [Suspect]
     Active Substance: POLYETHYLENE GLYCOL 3350
     Indication: INTESTINAL OBSTRUCTION
     Dosage: UNK
     Route: 048
     Dates: end: 20160810
  4. FLOMAX [Concomitant]
     Active Substance: TAMSULOSIN HYDROCHLORIDE
     Dosage: UNK
  5. VERAPAMIL [Concomitant]
     Active Substance: VERAPAMIL HYDROCHLORIDE
     Dosage: UNK
  6. GABAPENTIN. [Concomitant]
     Active Substance: GABAPENTIN
     Dosage: UNK

REACTIONS (7)
  - Off label use [None]
  - Off label use [None]
  - Rash [Not Recovered/Not Resolved]
  - Gingival swelling [Not Recovered/Not Resolved]
  - Hypersensitivity [Not Recovered/Not Resolved]
  - Gingival pain [Not Recovered/Not Resolved]
  - Product use issue [None]

NARRATIVE: CASE EVENT DATE: 2012
